FAERS Safety Report 10096746 (Version 1)
Quarter: 2014Q2

REPORT INFORMATION
  Report Type: Spontaneous
  Country: PL (occurrence: PL)
  Receive Date: 20140422
  Receipt Date: 20140422
  Transmission Date: 20141212
  Serious: Yes (Life-Threatening)
  Sender: FDA-Public Use
  Company Number: PHHY2014PL045028

PATIENT
  Age: 86 Year
  Sex: Male
  Weight: 56 kg

DRUGS (1)
  1. AMOKSIKLAV [Suspect]
     Indication: PNEUMONIA
     Route: 042

REACTIONS (1)
  - Anaphylactic shock [Recovered/Resolved]
